FAERS Safety Report 24333271 (Version 1)
Quarter: 2024Q3

REPORT INFORMATION
  Report Type: Spontaneous
  Country: US (occurrence: None)
  Receive Date: 20240917
  Receipt Date: 20240917
  Transmission Date: 20241016
  Serious: Yes (Other)
  Sender: Public
  Company Number: None

PATIENT
  Age: 60 Year
  Sex: Female
  Weight: 83.25 kg

DRUGS (5)
  1. WEGOVY [Suspect]
     Active Substance: SEMAGLUTIDE
     Indication: Weight decreased
     Dosage: OTHER QUANTITY : 1 INJECTION(S);?OTHER FREQUENCY : ONCE A WEEK;?OTHER ROUTE : INJECTION INTO FAT PAD
     Route: 050
     Dates: start: 20240712, end: 20240816
  2. LAMOTRIGINE [Concomitant]
     Active Substance: LAMOTRIGINE
  3. RINVOQ [Concomitant]
     Active Substance: UPADACITINIB
  4. VITAMIN D [Concomitant]
     Active Substance: VITAMIN D NOS
  5. VITAMINS [Concomitant]
     Active Substance: VITAMINS

REACTIONS (7)
  - Faecaloma [None]
  - White blood cells urine positive [None]
  - White blood cell count increased [None]
  - Nephrolithiasis [None]
  - Oesophagitis [None]
  - Cholelithiasis [None]
  - Gastritis [None]

NARRATIVE: CASE EVENT DATE: 20240822
